FAERS Safety Report 4750240-7 (Version None)
Quarter: 2005Q3

REPORT INFORMATION
  Report Type: 
  Country: None (occurrence: None)
  Receive Date: 20050823
  Receipt Date: 20050811
  Transmission Date: 20060218
  Serious: Yes (Other)
  Sender: FDA-Public Use
  Company Number: CH-BRISTOL-MYERS SQUIBB COMPANY-13081633

PATIENT
  Age: 64 Year
  Sex: Male

DRUGS (5)
  1. IRBESARTAN [Suspect]
     Indication: HYPERTENSIVE HEART DISEASE
     Dates: start: 20040601
  2. IRBESARTAN [Suspect]
     Indication: CARDIAC FAILURE CONGESTIVE
     Dates: start: 20040601
  3. ACENOCOUMAROL [Suspect]
     Dates: start: 20050101
  4. TORSEMIDE [Concomitant]
     Indication: HYPERTENSIVE HEART DISEASE
     Route: 048
     Dates: start: 20050201
  5. TORSEMIDE [Concomitant]
     Indication: CARDIAC FAILURE CONGESTIVE
     Route: 048
     Dates: start: 20050201

REACTIONS (2)
  - CHOLESTASIS [None]
  - CONDITION AGGRAVATED [None]
